FAERS Safety Report 5012252-8 (Version None)
Quarter: 2006Q2

REPORT INFORMATION
  Report Type: 
  Country: None (occurrence: None)
  Receive Date: 20060525
  Receipt Date: 20060525
  Transmission Date: 20061013
  Serious: Yes (Other)
  Sender: FDA-Public Use
  Company Number: None

PATIENT
  Age: 51 Year
  Sex: Female
  Weight: 66.6788 kg

DRUGS (1)
  1. BIAXIN [Suspect]
     Indication: SINUSITIS
     Dosage: PME TABLET BY MOUTH TWICE DAILY PO
     Route: 048
     Dates: start: 20060511, end: 20060514

REACTIONS (22)
  - AGEUSIA [None]
  - ANOSMIA [None]
  - ASTHENIA [None]
  - CHEST PAIN [None]
  - COLITIS [None]
  - DIARRHOEA HAEMORRHAGIC [None]
  - DYSGEUSIA [None]
  - DYSPEPSIA [None]
  - FEELING ABNORMAL [None]
  - FIBROMYALGIA [None]
  - GINGIVITIS [None]
  - HERPES SIMPLEX [None]
  - INSOMNIA [None]
  - IRRITABLE BOWEL SYNDROME [None]
  - NAUSEA [None]
  - NONSPECIFIC REACTION [None]
  - ORAL INTAKE REDUCED [None]
  - POISONING [None]
  - RESTLESSNESS [None]
  - SIMILAR REACTION ON PREVIOUS EXPOSURE TO DRUG [None]
  - STOMATITIS [None]
  - VOMITING [None]
